FAERS Safety Report 7305539-7 (Version None)
Quarter: 2011Q1

REPORT INFORMATION
  Report Type: 
  Country: None (occurrence: None)
  Receive Date: 20110222
  Receipt Date: 20100621
  Transmission Date: 20110831
  Serious: No
  Sender: FDA-Public Use
  Company Number: US-MYLANLABS-2010S1011155

PATIENT
  Age: 23 Year
  Sex: Male

DRUGS (1)
  1. ALPRAZOLAM [Suspect]
     Route: 048
     Dates: start: 20100605, end: 20100601

REACTIONS (2)
  - ABNORMAL BEHAVIOUR [None]
  - ANXIETY [None]
